FAERS Safety Report 23329197 (Version 1)
Quarter: 2023Q4

REPORT INFORMATION
  Report Type: Spontaneous
  Country: IN (occurrence: IN)
  Receive Date: 20231222
  Receipt Date: 20231222
  Transmission Date: 20240109
  Serious: Yes (Hospitalization, Other)
  Sender: FDA-Public Use
  Company Number: IN-MLMSERVICE-20231206-4710846-1

PATIENT
  Age: 52 Year
  Sex: Male

DRUGS (3)
  1. METHOTREXATE [Suspect]
     Active Substance: METHOTREXATE
     Indication: Skin exfoliation
     Dosage: STRENGTH: 15 UG
  2. METHOTREXATE [Suspect]
     Active Substance: METHOTREXATE
     Indication: Skin exfoliation
  3. METHOTREXATE [Suspect]
     Active Substance: METHOTREXATE
     Indication: Pruritus

REACTIONS (7)
  - Mouth ulceration [Recovered/Resolved]
  - Mucosal inflammation [Recovered/Resolved]
  - Oral mucosal exfoliation [Recovered/Resolved]
  - Hypertransaminasaemia [Recovered/Resolved]
  - Leukoerythroblastosis [Recovered/Resolved]
  - Accidental overdose [Recovered/Resolved]
  - Ulcer haemorrhage [Recovered/Resolved]
